FAERS Safety Report 6678812-3 (Version None)
Quarter: 2010Q2

REPORT INFORMATION
  Report Type: 
  Country: None (occurrence: None)
  Receive Date: 20100413
  Receipt Date: 20100401
  Transmission Date: 20101027
  Serious: Yes (Hospitalization)
  Sender: FDA-Public Use
  Company Number: US-MYLANLABS-2010S1005755

PATIENT
  Age: 79 Year
  Sex: Female

DRUGS (6)
  1. ADVAIR DISKUS 100/50 [Suspect]
     Indication: CHRONIC OBSTRUCTIVE PULMONARY DISEASE
     Dosage: 1 PUFF
     Route: 055
     Dates: start: 20100201, end: 20100315
  2. ADVAIR DISKUS 100/50 [Suspect]
     Indication: EMPHYSEMA
     Dosage: 1 PUFF
     Route: 055
     Dates: start: 20100201, end: 20100315
  3. DUONEB [Suspect]
  4. TIOTROPIUM [Suspect]
  5. PREDNISOLONE [Concomitant]
  6. BLOOD PRESSURE MEDICATION [Concomitant]

REACTIONS (7)
  - CIRCUMORAL OEDEMA [None]
  - LIP SWELLING [None]
  - ORAL DISCOMFORT [None]
  - OROPHARYNGEAL SWELLING [None]
  - SENSORY DISTURBANCE [None]
  - SWELLING FACE [None]
  - TREMOR [None]
